FAERS Safety Report 23696966 (Version 1)
Quarter: 2024Q2

REPORT INFORMATION
  Report Type: Other
  Country: FR (occurrence: None)
  Receive Date: 20240402
  Receipt Date: 20240402
  Transmission Date: 20240716
  Serious: Yes (Other)
  Sender: FDA-Public Use
  Company Number: FR-ROCHE-3534980

PATIENT

DRUGS (1)
  1. ATEZOLIZUMAB [Suspect]
     Active Substance: ATEZOLIZUMAB
     Indication: Colorectal cancer
     Route: 042

REACTIONS (14)
  - Hepatic cytolysis [Unknown]
  - Autoimmune hepatitis [Unknown]
  - Myositis [Unknown]
  - Lymphopenia [Unknown]
  - Dysphagia [Unknown]
  - Chills [Unknown]
  - Blood creatine phosphokinase increased [Unknown]
  - Weight decreased [Unknown]
  - Decreased appetite [Unknown]
  - Myalgia [Unknown]
  - Dyspnoea [Unknown]
  - Pneumonitis [Unknown]
  - Folliculitis [Unknown]
  - Psoriasis [Unknown]
